FAERS Safety Report 5855676-9 (Version None)
Quarter: 2008Q3

REPORT INFORMATION
  Report Type: 
  Country: None (occurrence: None)
  Receive Date: 20080823
  Receipt Date: 20080818
  Transmission Date: 20090109
  Serious: Yes (Other)
  Sender: FDA-Public Use
  Company Number: US-ELI_LILLY_AND_COMPANY-US200807006057

PATIENT
  Sex: Male

DRUGS (13)
  1. HUMALOG [Suspect]
     Dosage: UNK, UNK
     Route: 058
     Dates: start: 20010101
  2. ARICEPT [Concomitant]
     Dosage: 5 MG, DAILY (1/D)
     Route: 048
  3. PROVIGIL [Concomitant]
     Dosage: 100 MG, 2/D
     Route: 048
  4. FELODIPINE [Concomitant]
     Dosage: 5 MG, EACH MORNING
     Route: 048
  5. COREG [Concomitant]
     Dosage: 6.25 MG, 3/D
     Route: 048
  6. LISINOPRIL [Concomitant]
     Dosage: 40 MG, DAILY (1/D)
     Route: 048
  7. PLAVIX [Concomitant]
     Dosage: 75 MG, DAILY (1/D)
     Route: 048
  8. ZETIA [Concomitant]
     Dosage: 10 MG, DAILY (1/D)
     Route: 048
  9. NIACIN [Concomitant]
     Dosage: 1000 MG, DAILY (1/D)
     Route: 048
  10. TEMAZEPAM [Concomitant]
     Dosage: 30 MG, EACH EVENING
     Route: 048
  11. RAZADYNE [Concomitant]
     Dosage: 8 MG, 2/D
     Route: 048
  12. LESCOL [Concomitant]
     Dosage: 40 MG, DAILY (1/D)
     Route: 048
  13. ACTONEL [Concomitant]
     Dosage: 35 MG, WEEKLY (1/W)
     Route: 048

REACTIONS (3)
  - RENAL DISORDER [None]
  - RENAL IMPAIRMENT [None]
  - VISION BLURRED [None]
